FAERS Safety Report 11023421 (Version 1)
Quarter: 2015Q2

REPORT INFORMATION
  Report Type: Spontaneous
  Country: US (occurrence: US)
  Receive Date: 20150413
  Receipt Date: 20150413
  Transmission Date: 20150821
  Serious: No
  Sender: FDA-Public Use
  Company Number: US-PFIZER INC-2015120914

PATIENT
  Age: 55 Year
  Sex: Female
  Weight: 41 kg

DRUGS (13)
  1. OXYCODONE [Concomitant]
     Active Substance: OXYCODONE
     Indication: INTERVERTEBRAL DISC DEGENERATION
     Dosage: 10 MG, 3X/DAY
  2. OXYCODONE [Concomitant]
     Active Substance: OXYCODONE
     Indication: MUSCULOSKELETAL DISCOMFORT
  3. LISINOPRIL. [Concomitant]
     Active Substance: LISINOPRIL
  4. MOBIC [Concomitant]
     Active Substance: MELOXICAM
     Indication: INFLAMMATION
     Dosage: 15 MG, 1X/DAY
  5. DIAZEPAM. [Concomitant]
     Active Substance: DIAZEPAM
     Indication: ANXIETY
     Dosage: 5 MG, 3X/DAY
  6. OXYCODONE [Concomitant]
     Active Substance: OXYCODONE
     Indication: FIBROMYALGIA
  7. VITAMIN D [Concomitant]
     Active Substance: CHOLECALCIFEROL
     Indication: RICKETS
     Dosage: 5000 IU, DAILY
  8. VIRGIN COCONUT OIL [Concomitant]
     Indication: DYSPEPSIA
  9. POTASSIUM [Concomitant]
     Active Substance: POTASSIUM
     Indication: DEHYDRATION
     Dosage: 99 MG, DAILY
  10. LYRICA [Suspect]
     Active Substance: PREGABALIN
     Indication: FIBROMYALGIA
     Dosage: 200 MG, 3X/DAY
  11. DIAZEPAM. [Concomitant]
     Active Substance: DIAZEPAM
     Indication: INSOMNIA
  12. XALATAN [Suspect]
     Active Substance: LATANOPROST
     Indication: GLAUCOMA
     Dosage: 2 DROPS EACH EYE AT BEDTIME
  13. OXYCODONE [Concomitant]
     Active Substance: OXYCODONE
     Indication: OSTEOPENIA

REACTIONS (1)
  - Blood pressure abnormal [Unknown]
